FAERS Safety Report 11295107 (Version 1)
Quarter: 2015Q3

REPORT INFORMATION
  Report Type: Spontaneous
  Country: US (occurrence: None)
  Receive Date: 20150722
  Receipt Date: 20150722
  Transmission Date: 20151125
  Serious: Yes (Hospitalization)
  Sender: FDA-Public Use
  Company Number: None

PATIENT
  Age: 7 Week
  Sex: Female
  Weight: 3.2 kg

DRUGS (1)
  1. HYOSCYAMINE. [Suspect]
     Active Substance: HYOSCYAMINE
     Indication: ABDOMINAL PAIN
     Route: 048

REACTIONS (2)
  - Eye movement disorder [None]
  - Tremor [None]

NARRATIVE: CASE EVENT DATE: 20150714
